FAERS Safety Report 16295407 (Version 2)
Quarter: 2019Q3

REPORT INFORMATION
  Report Type: Report from Study
  Country: None (occurrence: US)
  Receive Date: 20190509
  Receipt Date: 20190819
  Transmission Date: 20191004
  Serious: Yes (Hospitalization, Other)
  Sender: FDA-Public Use
  Company Number: US-ABBVIE-19K-163-2768961-00

PATIENT
  Age: 55 Year
  Sex: Male
  Weight: 93.98 kg

DRUGS (3)
  1. METHOTREXATE. [Concomitant]
     Active Substance: METHOTREXATE
     Indication: RHEUMATOID ARTHRITIS
     Route: 065
     Dates: end: 201904
  2. GABAPENTIN. [Suspect]
     Active Substance: GABAPENTIN
     Indication: PRODUCT USED FOR UNKNOWN INDICATION
     Route: 065
  3. HUMIRA [Suspect]
     Active Substance: ADALIMUMAB
     Indication: RHEUMATOID ARTHRITIS
     Route: 058
     Dates: end: 201904

REACTIONS (10)
  - Lung disorder [Unknown]
  - Limb injury [Recovering/Resolving]
  - Platelet disorder [Unknown]
  - Injury [Unknown]
  - Accident at work [Recovering/Resolving]
  - Rheumatoid arthritis [Not Recovered/Not Resolved]
  - Coronary artery occlusion [Not Recovered/Not Resolved]
  - Blood pressure increased [Not Recovered/Not Resolved]
  - Pulmonary mass [Unknown]
  - Stress [Unknown]

NARRATIVE: CASE EVENT DATE: 201904
